FAERS Safety Report 6308232-2 (Version None)
Quarter: 2009Q3

REPORT INFORMATION
  Report Type: 
  Country: None (occurrence: None)
  Receive Date: 20090810
  Receipt Date: 20090723
  Transmission Date: 20100115
  Serious: Yes (Hospitalization)
  Sender: FDA-Public Use
  Company Number: 2009AL004808

PATIENT
  Age: 67 Year
  Sex: Male

DRUGS (24)
  1. DIGOXIN [Suspect]
     Dosage: 0.25MG, DAILY, PO
     Route: 048
  2. PLAVIX [Concomitant]
  3. ASPIRIN [Concomitant]
  4. ZETIA [Concomitant]
  5. ALBUTEROL [Concomitant]
  6. LEVAQUIN [Concomitant]
  7. LISINOPRIL [Concomitant]
  8. GABAPENTIN [Concomitant]
  9. SIMVASTATIN [Concomitant]
  10. SOTALOL HYDROCHLORIDE [Concomitant]
  11. LYRICA [Concomitant]
  12. METOPROLOL [Concomitant]
  13. LEVAQUIN [Concomitant]
  14. IMDUR [Concomitant]
  15. ADALAT [Concomitant]
  16. ZOCOR [Concomitant]
  17. PROCARDIA [Concomitant]
  18. DICLOFENAC [Concomitant]
  19. BETAPACE [Concomitant]
  20. CENTRUM [Concomitant]
  21. FISH OIL [Concomitant]
  22. NITROGLYCERIN [Concomitant]
  23. VITAMIN B COMPLEX CAP [Concomitant]
  24. COUMADIN [Concomitant]

REACTIONS (11)
  - ACUTE MYOCARDIAL INFARCTION [None]
  - ANAEMIA [None]
  - ARTERIOSCLEROSIS CORONARY ARTERY [None]
  - ASTHENIA [None]
  - CARDIAC ARREST [None]
  - CHEST PAIN [None]
  - DIZZINESS [None]
  - FATIGUE [None]
  - MELAENA [None]
  - PRESYNCOPE [None]
  - ULCER [None]
